FAERS Safety Report 9129507 (Version 4)
Quarter: 2013Q2

REPORT INFORMATION
  Report Type: Report from Study
  Country: DE (occurrence: DE)
  Receive Date: 20130228
  Receipt Date: 20130424
  Transmission Date: 20140414
  Serious: Yes (Hospitalization)
  Sender: FDA-Public Use
  Company Number: DE-GLAXOSMITHKLINE-B0871224A

PATIENT
  Age: 49 Year
  Sex: Female
  Weight: 61 kg

DRUGS (2)
  1. PAZOPANIB [Suspect]
     Indication: SARCOMA
     Route: 048
     Dates: start: 20120612, end: 20130316
  2. GEMZAR [Suspect]
     Indication: SARCOMA
     Route: 042
     Dates: start: 20120612, end: 20130316

REACTIONS (1)
  - Anal fistula [Recovered/Resolved]
